FAERS Safety Report 8339296-2 (Version None)
Quarter: 2012Q2

REPORT INFORMATION
  Report Type: 
  Country: None (occurrence: None)
  Receive Date: 20120502
  Receipt Date: 20120417
  Transmission Date: 20120825
  Serious: Yes (Hospitalization)
  Sender: FDA-Public Use
  Company Number: 2012HGS-003309

PATIENT
  Age: 40 Year
  Sex: Female

DRUGS (4)
  1. SALAZOPYRIN (SULFASAZINE) (SULFASAZINE) [Concomitant]
  2. CORTISONE (CORTISONE) (CORTISONE) [Concomitant]
  3. METHOTREXATE [Concomitant]
  4. BENLYSTA [Suspect]
     Dosage: INTRAVENOUS DRIP
     Route: 041
     Dates: start: 20111026

REACTIONS (20)
  - FEELING ABNORMAL [None]
  - DIZZINESS [None]
  - MOUTH ULCERATION [None]
  - DRUG HYPERSENSITIVITY [None]
  - CHILLS [None]
  - HYPOPHAGIA [None]
  - PYREXIA [None]
  - PAIN [None]
  - ARTHRALGIA [None]
  - RASH PRURITIC [None]
  - LIP SWELLING [None]
  - HYPOTENSION [None]
  - FATIGUE [None]
  - NASAL ULCER [None]
  - SKIN DISCOLOURATION [None]
  - PARAESTHESIA [None]
  - ILL-DEFINED DISORDER [None]
  - NAUSEA [None]
  - BACK PAIN [None]
  - AMNESIA [None]
